FAERS Safety Report 14057133 (Version 3)
Quarter: 2017Q4

REPORT INFORMATION
  Report Type: Spontaneous
  Country: US (occurrence: US)
  Receive Date: 20171006
  Receipt Date: 20171106
  Transmission Date: 20180321
  Serious: Yes (Hospitalization, Other)
  Sender: FDA-Public Use
  Company Number: US-SAOL THERAPEUTICS-2017SAO01425

PATIENT
  Age: 59 Year
  Sex: Female
  Weight: 74.8 kg

DRUGS (5)
  1. OPIOID (UNSPECIFIED) [Suspect]
     Active Substance: UNSPECIFIED INGREDIENT
     Route: 048
  2. LIORESAL [Suspect]
     Active Substance: BACLOFEN
     Indication: MUSCLE SPASTICITY
     Dosage: 1600 ?G, \DAY
     Route: 037
  3. LIORESAL [Suspect]
     Active Substance: BACLOFEN
     Indication: STIFF PERSON SYNDROME
     Dosage: 1000 ?G, \DAY
  4. OPIOID (UNSPECIFIED) [Suspect]
     Active Substance: UNSPECIFIED INGREDIENT
     Route: 037
  5. LIORESAL [Suspect]
     Active Substance: BACLOFEN
     Indication: PAIN

REACTIONS (6)
  - Psychogenic seizure [Unknown]
  - Depressed level of consciousness [Unknown]
  - Somnolence [Recovered/Resolved]
  - Toxicity to various agents [Unknown]
  - Loss of consciousness [Unknown]
  - Overdose [Recovered/Resolved]

NARRATIVE: CASE EVENT DATE: 2016
